FAERS Safety Report 5300120-3 (Version None)
Quarter: 2007Q1

REPORT INFORMATION
  Report Type: 
  Country: None (occurrence: None)
  Receive Date: 20070201
  Receipt Date: 20061010
  Transmission Date: 20070707
  Serious: No
  Sender: FDA-Public Use
  Company Number: 2006PV022849

PATIENT
  Age: 73 Year
  Sex: Female
  Weight: 86.1834 kg

DRUGS (6)
  1. BYETTA [Suspect]
     Indication: DIABETES MELLITUS NON-INSULIN-DEPENDENT
     Dosage: SEE IMAGE
     Route: 058
     Dates: start: 20060911, end: 20061002
  2. BYETTA [Suspect]
     Indication: DIABETES MELLITUS NON-INSULIN-DEPENDENT
     Dosage: SEE IMAGE
     Route: 058
     Dates: start: 20061003, end: 20061128
  3. METFORMIN HCL [Concomitant]
  4. LENTE INSULIN [Concomitant]
  5. HUMULIN 70/30 [Concomitant]
  6. METFORMIN HCL [Concomitant]

REACTIONS (4)
  - BLOOD GLUCOSE INCREASED [None]
  - CONSTIPATION [None]
  - DRUG EFFECT DECREASED [None]
  - NAUSEA [None]
